FAERS Safety Report 5619219-7 (Version None)
Quarter: 2008Q1

REPORT INFORMATION
  Report Type: 
  Country: None (occurrence: None)
  Receive Date: 20080205
  Receipt Date: 20080130
  Transmission Date: 20080703
  Serious: Yes (Death, Congenital Anomaly)
  Sender: FDA-Public Use
  Company Number: 2008-171422-NL

PATIENT

DRUGS (1)
  1. FOLLISTIM AQ [Suspect]

REACTIONS (2)
  - ANENCEPHALY [None]
  - STILLBIRTH [None]
